FAERS Safety Report 9437113 (Version 1)
Quarter: 2013Q3

REPORT INFORMATION
  Report Type: Spontaneous
  Country: US (occurrence: US)
  Receive Date: 20130802
  Receipt Date: 20130802
  Transmission Date: 20140515
  Serious: No
  Sender: FDA-Public Use
  Company Number: US-TEVA-422966USA

PATIENT
  Sex: Female

DRUGS (1)
  1. QNASL [Suspect]
     Dosage: 1 PUFF TWICE DAILY
     Route: 055

REACTIONS (1)
  - Inappropriate schedule of drug administration [Not Recovered/Not Resolved]
